FAERS Safety Report 11650490 (Version 2)
Quarter: 2015Q4

REPORT INFORMATION
  Report Type: Spontaneous
  Country: HU (occurrence: HU)
  Receive Date: 20151021
  Receipt Date: 20151123
  Transmission Date: 20160304
  Serious: Yes (Other)
  Sender: FDA-Public Use
  Company Number: HU-PFIZER INC-2015342715

PATIENT
  Age: 84 Year
  Sex: Female

DRUGS (1)
  1. CARDURA XL [Suspect]
     Active Substance: DOXAZOSIN MESYLATE
     Dosage: UNK

REACTIONS (7)
  - Cerebral infarction [Unknown]
  - Tinnitus [Unknown]
  - Dizziness [Unknown]
  - Mental impairment [Unknown]
  - Memory impairment [Unknown]
  - Cerebrovascular accident [Unknown]
  - Weight decreased [Unknown]
